FAERS Safety Report 8569064-8 (Version None)
Quarter: 2012Q3

REPORT INFORMATION
  Report Type: 
  Country: None (occurrence: None)
  Receive Date: 20120803
  Receipt Date: 20120724
  Transmission Date: 20120928
  Serious: Yes (Hospitalization, Other)
  Sender: FDA-Public Use
  Company Number: SI-FRI-1000037557

PATIENT
  Age: 65 Year
  Sex: Male

DRUGS (1)
  1. CITALOPRAM HYDROBROMIDE [Suspect]
     Indication: DEPRESSION
     Route: 042

REACTIONS (5)
  - DISORIENTATION [None]
  - PSYCHOMOTOR HYPERACTIVITY [None]
  - AGGRESSION [None]
  - URINARY INCONTINENCE [None]
  - DELIRIUM [None]
